FAERS Safety Report 6576775-2 (Version None)
Quarter: 2010Q1

REPORT INFORMATION
  Report Type: 
  Country: None (occurrence: None)
  Receive Date: 20100210
  Receipt Date: 20100129
  Transmission Date: 20100710
  Serious: Yes (Life-Threatening, Hospitalization)
  Sender: FDA-Public Use
  Company Number: MX-ROCHE-682010

PATIENT
  Sex: Male
  Weight: 85 kg

DRUGS (8)
  1. TOCILIZUMAB [Suspect]
     Indication: RHEUMATOID ARTHRITIS
     Dosage: LAST DOSE PRIOR TO SAE: 05 JANUARY 2010. DOSAGE FORM: VIAL
     Route: 042
     Dates: start: 20091208
  2. METHOTREXATE [Suspect]
     Indication: RHEUMATOID ARTHRITIS
     Route: 065
     Dates: start: 20051115, end: 20100125
  3. FOLIC ACID [Concomitant]
     Dates: start: 20051115, end: 20100125
  4. DICLOFENAC [Concomitant]
     Dates: start: 20051115, end: 20100125
  5. ENALAPRIL MALEATE [Concomitant]
     Dates: start: 20051115, end: 20100125
  6. PRAVASTATIN [Concomitant]
     Dosage: START DATE: 28 JUNE (YEAR NOT LEGIBLE).
  7. ASPIRIN [Concomitant]
     Dosage: START DATE: 28 JUNE (YEAR NOT LEGIBLE)
  8. PREDNISONE [Concomitant]

REACTIONS (1)
  - RESPIRATORY FAILURE [None]
